FAERS Safety Report 4929245-9 (Version None)
Quarter: 2006Q1

REPORT INFORMATION
  Report Type: 
  Country: None (occurrence: None)
  Receive Date: 20060301
  Receipt Date: 20060216
  Transmission Date: 20060701
  Serious: Yes (Other)
  Sender: FDA-Public Use
  Company Number: DZ-SANOFI-SYNTHELABO-A01200601443

PATIENT
  Age: 84 Year
  Sex: Female

DRUGS (5)
  1. PLAVIX [Suspect]
     Indication: CEREBROVASCULAR ACCIDENT
     Route: 048
  2. AMLOR [Concomitant]
     Indication: HYPERTENSION
     Dosage: 1 G
     Route: 048
  3. ASPEGIC [Concomitant]
     Indication: CEREBROVASCULAR ACCIDENT
     Dosage: 250 MG
     Route: 048
  4. COTAREG [Concomitant]
     Indication: HYPERTENSION
     Dosage: 250 MG
     Route: 048
  5. SOMAZINA [Concomitant]
     Indication: CEREBROVASCULAR ACCIDENT
     Route: 048

REACTIONS (1)
  - ANAL INFLAMMATION [None]
